FAERS Safety Report 5518940-9 (Version None)
Quarter: 2007Q4

REPORT INFORMATION
  Report Type: 
  Country: None (occurrence: None)
  Receive Date: 20071113
  Receipt Date: 20071113
  Transmission Date: 20080405
  Serious: Yes (Other)
  Sender: FDA-Public Use
  Company Number: None

PATIENT
  Age: 48 Year
  Sex: Female
  Weight: 54.4316 kg

DRUGS (1)
  1. CIPROFLOXACIN [Suspect]
     Indication: CYSTITIS
     Dosage: 1 TABLET  TWICE/DAY  PO
     Route: 048
     Dates: start: 20071001, end: 20071005

REACTIONS (6)
  - ARTHRALGIA [None]
  - ASTHENIA [None]
  - MOBILITY DECREASED [None]
  - MUSCULOSKELETAL PAIN [None]
  - MUSCULOSKELETAL STIFFNESS [None]
  - UNEVALUABLE EVENT [None]
